FAERS Safety Report 9664900 (Version 4)
Quarter: 2013Q4

REPORT INFORMATION
  Report Type: Report from Study
  Country: BE (occurrence: BE)
  Receive Date: 20131101
  Receipt Date: 20131223
  Transmission Date: 20140711
  Serious: Yes (Hospitalization, Other)
  Sender: FDA-Public Use
  Company Number: BE-GLAXOSMITHKLINE-B0938220A

PATIENT
  Age: 49 Year
  Sex: Female
  Weight: 43.5 kg

DRUGS (10)
  1. PAZOPANIB [Suspect]
     Indication: OVARIAN CANCER
     Dosage: 800MG PER DAY
     Route: 048
     Dates: start: 20130913, end: 20131004
  2. PACLITAXEL [Suspect]
     Indication: OVARIAN CANCER
     Dosage: 43MG WEEKLY
     Route: 042
     Dates: start: 20130905
  3. CARBOPLATIN [Suspect]
     Indication: OVARIAN CANCER
     Dosage: 230MG WEEKLY
     Route: 042
     Dates: start: 20130905
  4. DICLOFENAC [Concomitant]
     Indication: ABDOMINAL PAIN
     Dosage: 100MG TWICE PER DAY
     Route: 054
     Dates: start: 20131023
  5. MOVICOL [Concomitant]
     Indication: CONSTIPATION
     Dosage: 1SAC AS REQUIRED
     Route: 048
     Dates: start: 201305
  6. MORPHINE [Concomitant]
     Indication: ABDOMINAL PAIN
     Dosage: 30MG TWICE PER DAY
     Route: 048
     Dates: start: 20130903
  7. RANITIDINE [Concomitant]
     Indication: ABDOMINAL PAIN UPPER
     Dosage: 150MG TWICE PER DAY
     Route: 048
     Dates: start: 20130905
  8. ALIZAPRIDE [Concomitant]
     Indication: NAUSEA
     Dosage: 50MG AS REQUIRED
     Route: 048
     Dates: start: 20130905
  9. MORPHINE [Concomitant]
     Indication: ABDOMINAL PAIN
     Route: 062
     Dates: start: 20131025
  10. PANTOPRAZOLE [Concomitant]
     Indication: PAIN PROPHYLAXIS
     Dosage: 40MG PER DAY
     Route: 048
     Dates: start: 20131109, end: 20131114

REACTIONS (2)
  - Vaginal fistula [Recovered/Resolved]
  - Vaginal fistula [Recovered/Resolved]
